FAERS Safety Report 24136247 (Version 4)
Quarter: 2025Q1

REPORT INFORMATION
  Report Type: Spontaneous
  Country: US (occurrence: US)
  Receive Date: 20240725
  Receipt Date: 20250304
  Transmission Date: 20250409
  Serious: No
  Sender: PFIZER
  Company Number: US-PFIZER INC-202400221409

PATIENT
  Age: 16 Year
  Sex: Male

DRUGS (2)
  1. LITFULO [Suspect]
     Active Substance: RITLECITINIB TOSYLATE
     Indication: Alopecia universalis
     Dosage: 50 MG, 1X/DAY
     Dates: start: 20231010
  2. MINOXIDIL [Concomitant]
     Active Substance: MINOXIDIL

REACTIONS (3)
  - Gastrointestinal disorder [Unknown]
  - Alopecia universalis [Unknown]
  - Disease recurrence [Unknown]

NARRATIVE: CASE EVENT DATE: 20250225
